FAERS Safety Report 5469977-X (Version None)
Quarter: 2007Q3

REPORT INFORMATION
  Report Type: 
  Country: None (occurrence: None)
  Receive Date: 20070927
  Receipt Date: 20070917
  Transmission Date: 20080115
  Serious: Yes (Other)
  Sender: FDA-Public Use
  Company Number: FR-PFIZER INC-2007077570

PATIENT
  Sex: Male

DRUGS (5)
  1. CHAMPIX [Suspect]
     Indication: SMOKING CESSATION THERAPY
     Route: 048
     Dates: start: 20070430, end: 20070514
  2. PAROXETINE [Suspect]
     Indication: DEPRESSION
     Dosage: DAILY DOSE:20MG
     Route: 048
  3. SERESTA [Suspect]
     Indication: DEPRESSION
     Route: 048
  4. DESLORATADINE [Suspect]
     Dosage: TEXT:DAILY
     Route: 048
     Dates: start: 20070327, end: 20070427
  5. ALPRAZOLAM [Concomitant]
     Dosage: TEXT:0.25, ONE TO FOUR TABLETS PER DAY

REACTIONS (6)
  - AGGRESSION [None]
  - AGITATION [None]
  - ANXIETY [None]
  - NAUSEA [None]
  - PARAESTHESIA [None]
  - VOMITING [None]
